FAERS Safety Report 9442298 (Version 1)
Quarter: 2013Q3

REPORT INFORMATION
  Report Type: Spontaneous
  Country: US (occurrence: US)
  Receive Date: 20130806
  Receipt Date: 20130806
  Transmission Date: 20140515
  Serious: No
  Sender: FDA-Public Use
  Company Number: US-GLAXOSMITHKLINE-A0995438A

PATIENT
  Age: 86 Year
  Sex: Female

DRUGS (4)
  1. ADVAIR [Suspect]
     Indication: WHEEZING
     Dosage: 2PUFF TWICE PER DAY
     Route: 055
  2. VITAMINS [Concomitant]
  3. OMEPRAZOLE [Concomitant]
  4. RANITIDINE [Concomitant]

REACTIONS (6)
  - Amnesia [Unknown]
  - Fatigue [Not Recovered/Not Resolved]
  - Asthenia [Not Recovered/Not Resolved]
  - Activities of daily living impaired [Not Recovered/Not Resolved]
  - Muscle spasms [Not Recovered/Not Resolved]
  - Dysphonia [Not Recovered/Not Resolved]
